FAERS Safety Report 6755488-8 (Version None)
Quarter: 2010Q2

REPORT INFORMATION
  Report Type: 
  Country: None (occurrence: None)
  Receive Date: 20100604
  Receipt Date: 20100526
  Transmission Date: 20101027
  Serious: Yes (Death)
  Sender: FDA-Public Use
  Company Number: US-JNJFOC-20100600412

PATIENT
  Age: 26 Year
  Sex: Male

DRUGS (1)
  1. TRAMADOL HYDROCHLORIDE [Suspect]
     Indication: DRUG USE FOR UNKNOWN INDICATION
     Route: 065

REACTIONS (3)
  - ANALGESIC DRUG LEVEL ABOVE THERAPEUTIC [None]
  - ROAD TRAFFIC ACCIDENT [None]
  - TRAUMATIC BRAIN INJURY [None]
